FAERS Safety Report 4733326-2 (Version None)
Quarter: 2005Q3

REPORT INFORMATION
  Report Type: 
  Country: None (occurrence: None)
  Receive Date: 20050801
  Receipt Date: 20050801
  Transmission Date: 20060218
  Serious: No
  Sender: FDA-Public Use
  Company Number: None

PATIENT
  Age: 60 Year
  Sex: Female
  Weight: 112.0385 kg

DRUGS (2)
  1. ZANAFLEX [Suspect]
     Indication: INTERVERTEBRAL DISC DISORDER
     Dosage: 4 MG PO BID
     Route: 048
     Dates: start: 20041101
  2. ZANAFLEX [Suspect]
     Indication: SACROILIITIS
     Dosage: 4 MG PO BID
     Route: 048
     Dates: start: 20041101

REACTIONS (2)
  - DRUG INEFFECTIVE [None]
  - PHARMACEUTICAL PRODUCT COMPLAINT [None]
